FAERS Safety Report 17741466 (Version 7)
Quarter: 2021Q2

REPORT INFORMATION
  Report Type: Spontaneous
  Country: US (occurrence: US)
  Receive Date: 20200504
  Receipt Date: 20210521
  Transmission Date: 20210716
  Serious: Yes (Other)
  Sender: FDA-Public Use
  Company Number: US-PFIZER INC-2020177287

PATIENT
  Age: 65 Year
  Sex: Female
  Weight: 58.97 kg

DRUGS (6)
  1. XELJANZ XR [Suspect]
     Active Substance: TOFACITINIB CITRATE
     Dosage: 11 MG, 1X/DAY (11MG, TAKES ONCE PER DAY BY MOUTH)
     Route: 048
     Dates: start: 202102
  2. METHOTREXATE. [Suspect]
     Active Substance: METHOTREXATE
     Indication: RHEUMATOID ARTHRITIS
     Dosage: 2.5 MG ONLY TAKES 6 TABLETS PER WEEK
     Route: 048
  3. HUMIRA [Suspect]
     Active Substance: ADALIMUMAB
     Indication: RHEUMATOID ARTHRITIS
     Dosage: UNK
  4. XELJANZ XR [Suspect]
     Active Substance: TOFACITINIB CITRATE
     Dosage: 11 MG, 1X/DAY (11MG, TAKES ONCE PER DAY BY MOUTH)
     Route: 048
     Dates: start: 202104
  5. XELJANZ XR [Suspect]
     Active Substance: TOFACITINIB CITRATE
     Indication: RHEUMATOID ARTHRITIS
     Dosage: 11 MG
  6. XELJANZ XR [Suspect]
     Active Substance: TOFACITINIB CITRATE
     Dosage: 11 MG, 1X/DAY (11MG, TAKES ONCE PER DAY BY MOUTH)
     Route: 048
     Dates: start: 202103

REACTIONS (10)
  - Foot deformity [Unknown]
  - Therapeutic product effect delayed [Unknown]
  - Inflammation [Unknown]
  - Weight decreased [Unknown]
  - Hand deformity [Unknown]
  - Gait disturbance [Unknown]
  - Arthralgia [Unknown]
  - Impatience [Unknown]
  - Rheumatoid arthritis [Unknown]
  - Condition aggravated [Unknown]
